FAERS Safety Report 10142624 (Version 1)
Quarter: 2014Q2

REPORT INFORMATION
  Report Type: Report from Study
  Country: CA (occurrence: CA)
  Receive Date: 20140430
  Receipt Date: 20140430
  Transmission Date: 20141212
  Serious: Yes (Hospitalization, Other)
  Sender: FDA-Public Use
  Company Number: CA-JNJFOC-20140417546

PATIENT
  Age: 58 Year
  Sex: Female
  Weight: 111 kg

DRUGS (1)
  1. REMICADE [Suspect]
     Indication: CROHN^S DISEASE
     Route: 042
     Dates: start: 20100909

REACTIONS (2)
  - Angina unstable [Recovering/Resolving]
  - Lower respiratory tract infection [Recovering/Resolving]
